FAERS Safety Report 6665884-5 (Version None)
Quarter: 2010Q2

REPORT INFORMATION
  Report Type: 
  Country: None (occurrence: None)
  Receive Date: 20100402
  Receipt Date: 20100323
  Transmission Date: 20101027
  Serious: Yes (Hospitalization)
  Sender: FDA-Public Use
  Company Number: US-RB-005307-10

PATIENT
  Sex: Female

DRUGS (6)
  1. SUBOXONE [Suspect]
     Route: 060
  2. ABILIFY [Concomitant]
     Indication: DEPRESSION
     Dosage: UNKNOWN DOSING DETAILS
     Route: 065
  3. ADDERALL 30 [Concomitant]
     Indication: ATTENTION DEFICIT/HYPERACTIVITY DISORDER
     Dosage: UNKNOWN DOSING DETAILS
     Route: 065
  4. XANAX [Concomitant]
     Indication: ANXIETY
     Dosage: UNKNOWN DOSING DETAILS
     Route: 065
  5. AMBIEN [Concomitant]
     Indication: INSOMNIA
     Dosage: UNKNOWN DOSING DETAILS
     Route: 065
  6. LEXAPRO [Concomitant]
     Indication: DEPRESSION
     Dosage: UNKNOWN DOSING DETAILS
     Route: 065

REACTIONS (1)
  - PSYCHOTIC DISORDER [None]
